FAERS Safety Report 15115071 (Version 2)
Quarter: 2018Q3

REPORT INFORMATION
  Report Type: Spontaneous
  Country: BR (occurrence: BR)
  Receive Date: 20180706
  Receipt Date: 20180831
  Transmission Date: 20181010
  Serious: Yes (Other)
  Sender: FDA-Public Use
  Company Number: BR-ALEXION PHARMACEUTICALS INC.-A201808484

PATIENT
  Sex: Male

DRUGS (2)
  1. SOLIRIS [Suspect]
     Active Substance: ECULIZUMAB
     Indication: PAROXYSMAL NOCTURNAL HAEMOGLOBINURIA
     Dosage: 600 MG EVERY 7 DAYS
     Route: 042
     Dates: start: 20131226, end: 20140116
  2. SOLIRIS [Suspect]
     Active Substance: ECULIZUMAB
     Dosage: 900 MG EVERY 14 DAYS
     Route: 042
     Dates: start: 20140123

REACTIONS (6)
  - Portal vein thrombosis [Unknown]
  - Liver disorder [Unknown]
  - Hepatomegaly [Unknown]
  - Abdominal pain [Not Recovered/Not Resolved]
  - Ascites [Unknown]
  - Haemolysis [Not Recovered/Not Resolved]
